FAERS Safety Report 5269451-X (Version None)
Quarter: 2007Q1

REPORT INFORMATION
  Report Type: 
  Country: None (occurrence: None)
  Receive Date: 20070314
  Receipt Date: 20070310
  Transmission Date: 20070707
  Serious: Yes (Death)
  Sender: FDA-Public Use
  Company Number: 226673

PATIENT
  Age: 68 Year
  Sex: Male

DRUGS (2)
  1. MABTHERA (RITUXIMAB) CON FOR SOLUTION FOR INFUSION [Suspect]
     Indication: MANTLE CELL LYMPHOMA
  2. CHEMOTHERAPY (ANTINEOPLASTIC AGENT NOS) [Concomitant]

REACTIONS (1)
  - DEATH [None]
